FAERS Safety Report 5674829-6 (Version None)
Quarter: 2008Q1

REPORT INFORMATION
  Report Type: 
  Country: None (occurrence: None)
  Receive Date: 20080319
  Receipt Date: 20080319
  Transmission Date: 20080703
  Serious: Yes (Hospitalization)
  Sender: FDA-Public Use
  Company Number: None

PATIENT
  Age: 60 Year
  Sex: Female
  Weight: 61.7 kg

DRUGS (2)
  1. DASATINIB [Suspect]
     Indication: BREAST CANCER METASTATIC
     Dosage: 50MG BID PO
     Route: 048
     Dates: start: 20080111, end: 20080208
  2. DASATINIB [Suspect]
     Dosage: 70MG BID PO
     Route: 048
     Dates: start: 20080208, end: 20080225

REACTIONS (2)
  - BLOOD POTASSIUM DECREASED [None]
  - LOSS OF CONSCIOUSNESS [None]
